FAERS Safety Report 12697501 (Version 1)
Quarter: 2016Q3

REPORT INFORMATION
  Report Type: Spontaneous
  Country: US (occurrence: US)
  Receive Date: 20160830
  Receipt Date: 20160830
  Transmission Date: 20161109
  Serious: No
  Sender: FDA-Public Use
  Company Number: US-PFIZER INC-2016396640

PATIENT
  Age: 62 Year
  Sex: Male
  Weight: 66.9 kg

DRUGS (4)
  1. NITROGLYCERIN. [Suspect]
     Active Substance: NITROGLYCERIN
     Indication: RADIATION ASSOCIATED PAIN
  2. ASPIRIN. [Suspect]
     Active Substance: ASPIRIN
     Indication: CHEST DISCOMFORT
     Dosage: UNK
  3. NITROGLYCERIN. [Suspect]
     Active Substance: NITROGLYCERIN
     Indication: CHEST DISCOMFORT
     Route: 060
  4. ASPIRIN. [Suspect]
     Active Substance: ASPIRIN
     Indication: RADIATION ASSOCIATED PAIN

REACTIONS (1)
  - Drug ineffective [Unknown]
